FAERS Safety Report 8642789 (Version 3)
Quarter: 2012Q4

REPORT INFORMATION
  Report Type: 
  Country: JP (occurrence: JP)
  Receive Date: 20120629
  Receipt Date: 20121010
  Transmission Date: 20130627
  Serious: Yes (Other)
  Sender: FDA-Public Use
  Company Number: JP-FOUGERA-2012FO001226

PATIENT
  Age: 33 Year
  Sex: Male

DRUGS (9)
  1. PANDEL [Suspect]
     Indication: DERMATITIS ATOPIC
     Dates: start: 19930716
  2. HYDROCORTISONE ACETATE [Suspect]
     Indication: DERMATITIS ATOPIC
     Dates: start: 19951208, end: 19960312
  3. DIFLUCORTOLONE VALERATE [Suspect]
     Indication: PRODUCT USED FOR UNKNOWN INDICATION
     Route: 061
  4. DEXAMETHASONE [Suspect]
     Indication: PRODUCT USED FOR UNKNOWN INDICATION
     Route: 047
  5. LIDOMEX [Suspect]
     Indication: PRODUCT USED FOR UNKNOWN INDICATION
     Route: 061
  6. MYSER [Suspect]
     Indication: PRODUCT USED FOR UNKNOWN INDICATION
     Route: 061
  7. DEXAMETHASONE VALERATE [Suspect]
     Indication: PRODUCT USED FOR UNKNOWN INDICATION
     Route: 061
  8. DIFLUCORTOLONE VALERATE [Suspect]
     Indication: PRODUCT USED FOR UNKNOWN INDICATION
     Route: 061
  9. NEO-MEDROL [Suspect]
     Indication: PRODUCT USED FOR UNKNOWN INDICATION
     Route: 061

REACTIONS (1)
  - Glaucoma [Unknown]
